FAERS Safety Report 6372489-2 (Version None)
Quarter: 2009Q3

REPORT INFORMATION
  Report Type: 
  Country: None (occurrence: None)
  Receive Date: 20090924
  Receipt Date: 20080728
  Transmission Date: 20100115
  Serious: Yes (Other)
  Sender: FDA-Public Use
  Company Number: US-ASTRAZENECA-2008UW15462

PATIENT
  Age: 22 Year
  Sex: Male
  Weight: 68 kg

DRUGS (5)
  1. SEROQUEL [Suspect]
     Indication: ANXIETY
     Dosage: 50MG/DAY (DAY 1), 100MG/DAY (DAY 2), 200MG/DAY (DAY 3), 300MG/DAY (DAY 4)
     Route: 048
     Dates: start: 20080715, end: 20080718
  2. SEROQUEL [Suspect]
     Indication: DEPRESSION
     Dosage: 50MG/DAY (DAY 1), 100MG/DAY (DAY 2), 200MG/DAY (DAY 3), 300MG/DAY (DAY 4)
     Route: 048
     Dates: start: 20080715, end: 20080718
  3. SEROQUEL XR [Suspect]
     Route: 048
     Dates: start: 20080719
  4. REMERON [Concomitant]
  5. CLONOPIN [Concomitant]
     Indication: ANXIETY

REACTIONS (7)
  - ANXIETY [None]
  - DECREASED APPETITE [None]
  - DRY MOUTH [None]
  - EXERCISE LACK OF [None]
  - INSOMNIA [None]
  - LIBIDO DECREASED [None]
  - SUICIDAL IDEATION [None]
